FAERS Safety Report 5331530-6 (Version None)
Quarter: 2007Q2

REPORT INFORMATION
  Report Type: 
  Country: None (occurrence: None)
  Receive Date: 20070522
  Receipt Date: 20070514
  Transmission Date: 20071010
  Serious: Yes (Hospitalization)
  Sender: FDA-Public Use
  Company Number: ES-BOEHRINGER INGELHEIM PHARMACEUTICALS, INC.-2007-DE-02868GD

PATIENT

DRUGS (1)
  1. DIPYRIDAMOLE [Suspect]

REACTIONS (1)
  - HAEMORRHAGE INTRACRANIAL [None]
